FAERS Safety Report 13678170 (Version 1)
Quarter: 2017Q2

REPORT INFORMATION
  Report Type: Spontaneous
  Country: US (occurrence: US)
  Receive Date: 20170621
  Receipt Date: 20170621
  Transmission Date: 20170830
  Serious: No
  Sender: FDA-Public Use
  Company Number: None

PATIENT
  Age: 58 Year
  Sex: Male
  Weight: 99 kg

DRUGS (1)
  1. CIPROFLOXACIN/DEXAMETHASONE [Suspect]
     Active Substance: CIPROFLOXACIN\DEXAMETHASONE
     Indication: INFECTION
     Dosage: ROUTE - EAR
     Dates: start: 20170411, end: 20170418

REACTIONS (4)
  - Pain [None]
  - Ear swelling [None]
  - Urticaria [None]
  - Excoriation [None]

NARRATIVE: CASE EVENT DATE: 20170418
